FAERS Safety Report 8046953-4 (Version None)
Quarter: 2012Q1

REPORT INFORMATION
  Report Type: 
  Country: None (occurrence: None)
  Receive Date: 20120116
  Receipt Date: 20120102
  Transmission Date: 20120608
  Serious: Yes (Hospitalization)
  Sender: FDA-Public Use
  Company Number: DE-AMGEN-DEUCT2012000998

PATIENT
  Age: 38 Year
  Sex: Female

DRUGS (3)
  1. IBUPROFEN [Concomitant]
     Dosage: 800 MG, 1X/DAY
  2. ENBREL [Suspect]
     Indication: RHEUMATOID ARTHRITIS
     Dosage: 50 MG, UNK
     Route: 058
     Dates: start: 20040101
  3. DIENOGEST [Concomitant]
     Dosage: UNK

REACTIONS (3)
  - INTERVERTEBRAL DISC DISORDER [None]
  - UTERINE DILATION AND CURETTAGE [None]
  - CYST [None]
